FAERS Safety Report 15017029 (Version 1)
Quarter: 2018Q2

REPORT INFORMATION
  Report Type: Report from Study
  Country: MX (occurrence: MX)
  Receive Date: 20180615
  Receipt Date: 20180615
  Transmission Date: 20180711
  Serious: Yes (Other)
  Sender: FDA-Public Use
  Company Number: MX-UCBSA-2018025737

PATIENT
  Sex: Female
  Weight: 68 kg

DRUGS (9)
  1. LACOSAMIDE. [Suspect]
     Active Substance: LACOSAMIDE
     Dosage: 150 MG, ? OF A TABLET AT MORNING/1 TABLET AT AFTERNOON/1 TABLET AT NIGHT, 3X/DAY (TID)
     Route: 048
  2. LACOSAMIDE. [Suspect]
     Active Substance: LACOSAMIDE
     Dosage: 150 MG, 1 TABLET AT MORNING/? OF A TABLET AT AFTERNOON/1 TABLET AT NIGHT , 3X/DAY (TID)
     Route: 048
  3. EPIVAL [Concomitant]
     Active Substance: DIVALPROEX SODIUM
     Indication: EPILEPSY
     Dosage: 500 MG, 1 ? TABLETS AT MORNING/? OF A TABLET AT AFTERNOON/1 ? TABLETS AT NIGHT
  4. CLONAZEPAM. [Concomitant]
     Active Substance: CLONAZEPAM
     Indication: EPILEPSY
     Dosage: 2 MG (? OF A TABLET AT MIDDAY/1 ? TABLETS AT NIGHT
  5. PREGABALIN. [Concomitant]
     Active Substance: PREGABALIN
     Indication: EPILEPSY
     Dosage: 75 MG, ONCE DAILY (QD)
  6. OXCARBAZEPINE. [Concomitant]
     Active Substance: OXCARBAZEPINE
     Indication: PRODUCT USED FOR UNKNOWN INDICATION
     Dosage: UNK
  7. LEVETIRACETAM. [Concomitant]
     Active Substance: LEVETIRACETAM
     Indication: EPILEPSY
     Dosage: 500 MG, 2 TABLETS AT MORNING/ 2 ? TABLETS AT NIGHT, 2X/DAY (BID)
  8. LACOSAMIDE. [Suspect]
     Active Substance: LACOSAMIDE
     Indication: EPILEPSY
     Dosage: 150 MG HALF TABLET, 3X/DAY (TID)
     Route: 048
     Dates: start: 2013
  9. MIRTAZAPINE. [Concomitant]
     Active Substance: MIRTAZAPINE
     Indication: EPILEPSY
     Dosage: 30 MG (? OF A TABLET AT NIGHTS/24 HOURS, ONCE DAILY

REACTIONS (2)
  - Off label use [Unknown]
  - Seizure [Recovering/Resolving]

NARRATIVE: CASE EVENT DATE: 2013
